FAERS Safety Report 26157837 (Version 1)
Quarter: 2025Q4

REPORT INFORMATION
  Report Type: Spontaneous
  Country: US (occurrence: None)
  Receive Date: 20251213
  Receipt Date: 20251213
  Transmission Date: 20260118
  Serious: Yes (Life-Threatening, Hospitalization, Disabling)
  Sender: FDA-CTU
  Company Number: None

PATIENT
  Age: 35 Year
  Sex: Female

DRUGS (1)
  1. FLAGYL [Suspect]
     Active Substance: METRONIDAZOLE\METRONIDAZOLE HYDROCHLORIDE
     Indication: Bacterial vulvovaginitis
     Route: 048
     Dates: start: 20241117, end: 20241119

REACTIONS (18)
  - Suicidal ideation [None]
  - Impaired work ability [None]
  - Diplopia [None]
  - Vision blurred [None]
  - Hypoaesthesia [None]
  - Confusional state [None]
  - Brain fog [None]
  - Dissociation [None]
  - Sensory disturbance [None]
  - Anxiety [None]
  - Panic attack [None]
  - Depression [None]
  - Urticaria [None]
  - Impaired driving ability [None]
  - Postural orthostatic tachycardia syndrome [None]
  - Mental disorder [None]
  - Emotional disorder [None]
  - Mast cell activation syndrome [None]

NARRATIVE: CASE EVENT DATE: 20241117
